FAERS Safety Report 5517479-4 (Version None)
Quarter: 2007Q4

REPORT INFORMATION
  Report Type: 
  Country: None (occurrence: None)
  Receive Date: 20071114
  Receipt Date: 20071102
  Transmission Date: 20080405
  Serious: Yes (Other)
  Sender: FDA-Public Use
  Company Number: GB-PFIZER INC-2007074771

PATIENT
  Age: 45 Year
  Sex: Female
  Weight: 64 kg

DRUGS (3)
  1. CHAMPIX [Suspect]
     Indication: SMOKING CESSATION THERAPY
     Route: 048
     Dates: start: 20070511, end: 20070516
  2. ZUMESTON [Concomitant]
     Indication: HORMONE REPLACEMENT THERAPY
     Route: 048
  3. RANITIDINE [Concomitant]
     Indication: HIATUS HERNIA
     Route: 048

REACTIONS (2)
  - HYPOAESTHESIA [None]
  - SWELLING FACE [None]
